FAERS Safety Report 8963283 (Version 1)
Quarter: 2012Q4

REPORT INFORMATION
  Report Type: 
  Country: US (occurrence: US)
  Receive Date: 20121214
  Receipt Date: 20121214
  Transmission Date: 20130627
  Serious: No
  Sender: FDA-Public Use
  Company Number: US-PFIZER INC-2012311903

PATIENT
  Age: 45 Year
  Sex: Male
  Weight: 72.56 kg

DRUGS (3)
  1. PROTONIX [Suspect]
     Dosage: 40 mg, 1x/day
     Route: 048
     Dates: start: 2010, end: 201209
  2. HYDROCODONE [Concomitant]
     Dosage: 10 mg, 3x/day
  3. METHOCARBAMOL [Concomitant]
     Dosage: UNK

REACTIONS (1)
  - Abdominal pain upper [Unknown]
